FAERS Safety Report 7153824-4 (Version None)
Quarter: 2010Q4

REPORT INFORMATION
  Report Type: 
  Country: None (occurrence: None)
  Receive Date: 20101213
  Receipt Date: 20100707
  Transmission Date: 20110411
  Serious: No
  Sender: FDA-Public Use
  Company Number: US-ABBOTT-10P-163-0644077-00

PATIENT
  Sex: Male

DRUGS (2)
  1. MERIDIA [Suspect]
     Indication: WEIGHT CONTROL
     Dosage: 1.5 IN 1 DAY
     Dates: start: 20100401
  2. MERIDIA [Suspect]
     Dates: start: 20100101, end: 20100401

REACTIONS (2)
  - DRUG INEFFECTIVE [None]
  - DRY MOUTH [None]
